FAERS Safety Report 9628900 (Version 1)
Quarter: 2013Q4

REPORT INFORMATION
  Report Type: Spontaneous
  Country: US (occurrence: US)
  Receive Date: 20131017
  Receipt Date: 20131017
  Transmission Date: 20140711
  Serious: Yes (Hospitalization)
  Sender: FDA-Public Use
  Company Number: US-JNJFOC-20131008526

PATIENT
  Sex: 0

DRUGS (3)
  1. EDURANT [Suspect]
     Indication: HIV INFECTION
     Route: 048
  2. PREZISTA [Concomitant]
  3. RITONAVIR [Concomitant]

REACTIONS (2)
  - Adverse event [Not Recovered/Not Resolved]
  - Wrong technique in drug usage process [Not Recovered/Not Resolved]
